FAERS Safety Report 7978393-8 (Version None)
Quarter: 2011Q4

REPORT INFORMATION
  Report Type: 
  Country: None (occurrence: None)
  Receive Date: 20111205
  Receipt Date: 20111201
  Transmission Date: 20120403
  Serious: Yes (Other)
  Sender: FDA-Public Use
  Company Number: 2011SP053085

PATIENT
  Age: 21 Year
  Sex: Female
  Weight: 81 kg

DRUGS (2)
  1. IMPLANON [Suspect]
  2. IMPLANON [Suspect]
     Indication: PRODUCT USED FOR UNKNOWN INDICATION
     Dates: start: 20101130, end: 20111110

REACTIONS (3)
  - DEVICE DISLOCATION [None]
  - PREGNANCY WITH INJECTABLE CONTRACEPTIVE [None]
  - ABORTION INDUCED [None]
